FAERS Safety Report 18000954 (Version 2)
Quarter: 2020Q3

REPORT INFORMATION
  Report Type: Spontaneous
  Country: US (occurrence: US)
  Receive Date: 20200709
  Receipt Date: 20200804
  Transmission Date: 20201103
  Serious: Yes (Other)
  Sender: FDA-Public Use
  Company Number: US-GILEAD-2020-0477115

PATIENT
  Sex: Male

DRUGS (1)
  1. VIREAD [Suspect]
     Active Substance: TENOFOVIR DISOPROXIL FUMARATE
     Indication: HIV INFECTION
     Dosage: UNK
     Route: 048
     Dates: start: 201603

REACTIONS (8)
  - Osteoporosis [Unknown]
  - Anhedonia [Unknown]
  - Multiple fractures [Unknown]
  - Bone density decreased [Unknown]
  - Emotional distress [Unknown]
  - Tooth loss [Unknown]
  - Pain [Unknown]
  - Anxiety [Unknown]
